FAERS Safety Report 6135736-8 (Version None)
Quarter: 2009Q1

REPORT INFORMATION
  Report Type: 
  Country: None (occurrence: None)
  Receive Date: 20090327
  Receipt Date: 20090316
  Transmission Date: 20090719
  Serious: Yes (Hospitalization, Other)
  Sender: FDA-Public Use
  Company Number: US-ABBOTT-09P-163-0562765-00

PATIENT
  Sex: Male
  Weight: 106.69 kg

DRUGS (16)
  1. NIASPAN [Suspect]
     Indication: DYSLIPIDAEMIA
     Route: 048
     Dates: start: 20090310
  2. NIASPAN [Suspect]
     Route: 048
     Dates: start: 20090210, end: 20090310
  3. FENOFIBRATE [Concomitant]
     Indication: DYSLIPIDAEMIA
     Dates: end: 20090210
  4. METFORMIN [Concomitant]
     Indication: DIABETES MELLITUS
     Route: 048
  5. GLIMIPRIDE [Concomitant]
     Indication: DIABETES MELLITUS
     Route: 048
  6. ALLOPURINOL [Concomitant]
     Indication: GOUT
     Route: 048
  7. QUINAPRIL [Concomitant]
     Indication: HYPERTENSION
     Route: 048
  8. ATENOLOL [Concomitant]
     Indication: HYPERTENSION
     Route: 048
  9. SYNTHROID [Concomitant]
     Indication: HYPOTHYROIDISM
     Route: 048
  10. LANTUS [Concomitant]
     Indication: DIABETES MELLITUS
     Route: 058
  11. LOVANZA [Concomitant]
     Indication: DRUG USE FOR UNKNOWN INDICATION
     Route: 048
  12. STARLIX [Concomitant]
     Indication: DIABETES MELLITUS
     Route: 048
  13. CIALIS [Concomitant]
     Indication: DRUG USE FOR UNKNOWN INDICATION
     Route: 048
  14. SIMCOR [Concomitant]
     Indication: DYSLIPIDAEMIA
     Dosage: 500MG/20MG
     Route: 048
  15. NEXIUM [Concomitant]
     Indication: DRUG USE FOR UNKNOWN INDICATION
     Route: 048
  16. TRILIPIX [Concomitant]
     Indication: DYSLIPIDAEMIA
     Route: 048

REACTIONS (2)
  - ANOREXIA [None]
  - PANCREATITIS [None]
